FAERS Safety Report 9329880 (Version 1)
Quarter: 2013Q2

REPORT INFORMATION
  Report Type: Spontaneous
  Country: CA (occurrence: CA)
  Receive Date: 20130604
  Receipt Date: 20130604
  Transmission Date: 20140414
  Serious: Yes (Other)
  Sender: FDA-Public Use
  Company Number: CA-PURDUE-CAN-2013-0004217

PATIENT
  Age: 32 Year
  Sex: Male

DRUGS (2)
  1. HYDROMORPHONE HCL [Suspect]
     Indication: PRODUCT USED FOR UNKNOWN INDICATION
  2. CANNABIS [Suspect]
     Indication: PRODUCT USED FOR UNKNOWN INDICATION

REACTIONS (9)
  - Drug dependence [Unknown]
  - Substance abuse [Unknown]
  - Injury [Unknown]
  - Road traffic accident [Unknown]
  - Impaired driving ability [Unknown]
  - Dysarthria [Unknown]
  - Pupillary reflex impaired [Unknown]
  - Somnolence [Unknown]
  - Tremor [Unknown]
